FAERS Safety Report 7935052-5 (Version None)
Quarter: 2011Q4

REPORT INFORMATION
  Report Type: 
  Country: None (occurrence: None)
  Receive Date: 20111122
  Receipt Date: 20111109
  Transmission Date: 20120403
  Serious: Yes (Hospitalization)
  Sender: FDA-Public Use
  Company Number: NL-MEDIMMUNE-MEDI-0013938

PATIENT
  Sex: Female
  Weight: 3.24 kg

DRUGS (2)
  1. SYNAGIS [Suspect]
     Indication: PREMATURE BABY
     Route: 030
     Dates: start: 20110918, end: 20111012
  2. SYNAGIS [Suspect]
     Route: 030
     Dates: start: 20111114, end: 20111114

REACTIONS (2)
  - DECREASED APPETITE [None]
  - VOMITING [None]
